FAERS Safety Report 7199006-1 (Version None)
Quarter: 2010Q4

REPORT INFORMATION
  Report Type: 
  Country: None (occurrence: None)
  Receive Date: 20101228
  Receipt Date: 20091110
  Transmission Date: 20110411
  Serious: No
  Sender: FDA-Public Use
  Company Number: 2009BI037204

PATIENT
  Sex: Female

DRUGS (5)
  1. TYSABRI [Suspect]
     Indication: MULTIPLE SCLEROSIS
     Route: 042
     Dates: start: 20071001
  2. PEPCID [Concomitant]
     Indication: RASH PAPULAR
     Route: 042
  3. PEPCID [Concomitant]
     Indication: CHILLS
     Route: 042
  4. BENADRYL [Concomitant]
     Indication: RASH PAPULAR
     Route: 042
  5. BENADRYL [Concomitant]
     Indication: CHILLS
     Route: 042

REACTIONS (4)
  - CHILLS [None]
  - CHOKING [None]
  - PARAESTHESIA [None]
  - RASH PAPULAR [None]
